FAERS Safety Report 6048050-6 (Version None)
Quarter: 2009Q1

REPORT INFORMATION
  Report Type: 
  Country: None (occurrence: None)
  Receive Date: 20090123
  Receipt Date: 20090112
  Transmission Date: 20090719
  Serious: Yes (Death, Hospitalization)
  Sender: FDA-Public Use
  Company Number: DE-PFIZER INC-2006084760

PATIENT

DRUGS (6)
  1. SUNITINIB MALATE [Suspect]
     Indication: METASTATIC RENAL CELL CARCINOMA
     Dosage: ONCE - INTERVAL: DAILY
     Route: 048
     Dates: start: 20060331, end: 20060703
  2. SUNITINIB MALATE [Suspect]
     Dosage: ONCE - INTERVAL:  DAYLY
     Route: 048
     Dates: start: 20060512, end: 20060608
  3. SUNITINIB MALATE [Suspect]
     Dosage: ONCE - INTERVAL:  DAYLY
     Route: 048
     Dates: start: 20060623, end: 20060703
  4. FORTECORTIN [Concomitant]
     Dosage: UNK
     Route: 048
     Dates: start: 20060317, end: 20060705
  5. BERLTHYROX [Concomitant]
     Dosage: UNK
     Route: 048
     Dates: start: 19710101, end: 20060703
  6. RAMIPRIL [Concomitant]
     Dosage: UNK
     Dates: start: 20060615

REACTIONS (2)
  - LOSS OF CONSCIOUSNESS [None]
  - UROSEPSIS [None]
